FAERS Safety Report 4918363-7 (Version None)
Quarter: 2006Q1

REPORT INFORMATION
  Report Type: 
  Country: None (occurrence: None)
  Receive Date: 20060214
  Receipt Date: 20060126
  Transmission Date: 20060701
  Serious: Yes (Other)
  Sender: FDA-Public Use
  Company Number: DE200602000083

PATIENT
  Sex: Male

DRUGS (3)
  1. GEMZAR [Suspect]
     Indication: BLADDER CANCER
     Dosage: 1000 MG/M2, INTRAVENOUS; 80%, INTRAVENOUS
     Route: 042
     Dates: start: 20030805, end: 20040210
  2. GEMZAR [Suspect]
     Indication: BLADDER CANCER
     Dosage: 1000 MG/M2, INTRAVENOUS; 80%, INTRAVENOUS
     Route: 042
     Dates: start: 20050310
  3. CISPLATIN (CISPLATIN UNKNOWN FORMULATION) [Concomitant]

REACTIONS (4)
  - BLADDER CANCER [None]
  - MALIGNANT NEOPLASM PROGRESSION [None]
  - VASCULAR NEOPLASM [None]
  - WEIGHT INCREASED [None]
